FAERS Safety Report 22966702 (Version 2)
Quarter: 2023Q4

REPORT INFORMATION
  Report Type: Spontaneous
  Country: JP (occurrence: JP)
  Receive Date: 20230921
  Receipt Date: 20231018
  Transmission Date: 20240110
  Serious: Yes (Other)
  Sender: FDA-Public Use
  Company Number: JP-PFIZER INC-PV202300156145

PATIENT
  Age: 77 Year
  Sex: Male
  Weight: 59.2 kg

DRUGS (6)
  1. PAXLOVID [Interacting]
     Active Substance: NIRMATRELVIR\RITONAVIR
     Indication: COVID-19 treatment
     Dosage: [NIRMATRELVIR 300 MG]/[RITONAVIR 100 MG]; 2X/DAY
     Route: 048
     Dates: start: 20230123, end: 20230127
  2. PROGRAF [Interacting]
     Active Substance: TACROLIMUS
     Indication: Renal transplant
     Dosage: UNK
     Dates: start: 20030918, end: 20230201
  3. PROGRAF [Interacting]
     Active Substance: TACROLIMUS
     Dosage: 2 MG, 2X/DAY
     Dates: start: 20230210
  4. CELLCEPT [Concomitant]
     Active Substance: MYCOPHENOLATE MOFETIL
     Dosage: UNK
     Route: 048
     Dates: start: 20030918
  5. PREDNISOLONE ACETATE [Concomitant]
     Active Substance: PREDNISOLONE ACETATE
     Dosage: UNK
     Route: 048
     Dates: start: 20030918
  6. AMLODIPINE [Concomitant]
     Active Substance: AMLODIPINE BESYLATE
     Dosage: UNK
     Route: 048
     Dates: start: 20030611

REACTIONS (3)
  - Drug interaction [Recovered/Resolved]
  - Drug level increased [Recovered/Resolved]
  - Alanine aminotransferase increased [Recovered/Resolved]

NARRATIVE: CASE EVENT DATE: 20230201
